FAERS Safety Report 9485009 (Version 1)
Quarter: 2013Q3

REPORT INFORMATION
  Report Type: Spontaneous
  Country: US (occurrence: US)
  Receive Date: 20130828
  Receipt Date: 20130828
  Transmission Date: 20140515
  Serious: No
  Sender: FDA-Public Use
  Company Number: US-ABBOTT-13P-163-1106036-00

PATIENT
  Age: 43 Year
  Sex: Male
  Weight: 100.33 kg

DRUGS (3)
  1. ANDROGEL [Suspect]
     Indication: BLOOD TESTOSTERONE DECREASED
     Dosage: 2 PUMPS
     Dates: start: 20130430, end: 20130605
  2. ANDROGEL [Suspect]
     Route: 061
     Dates: start: 20130605
  3. METOPROLOL [Concomitant]
     Indication: HYPERTENSION
     Route: 048

REACTIONS (1)
  - Blood testosterone decreased [Not Recovered/Not Resolved]
